FAERS Safety Report 12947150 (Version 2)
Quarter: 2016Q4

REPORT INFORMATION
  Report Type: Spontaneous
  Country: US (occurrence: US)
  Receive Date: 20161116
  Receipt Date: 20161226
  Transmission Date: 20170207
  Serious: No
  Sender: FDA-Public Use
  Company Number: US-ASTRAZENECA-2016SF14983

PATIENT
  Age: 20618 Day
  Sex: Female
  Weight: 64.9 kg

DRUGS (11)
  1. TAGRISSO [Suspect]
     Active Substance: OSIMERTINIB
     Indication: LUNG NEOPLASM MALIGNANT
     Route: 048
     Dates: start: 20160927, end: 20161102
  2. PROGESTERONE LOTION [Concomitant]
     Dosage: APPLY ONCE DAILY FOR THREE WEEKS OFF ONE WEEK
     Dates: start: 20151111
  3. VENTOLIN [Concomitant]
     Active Substance: ALBUTEROL SULFATE
     Dosage: 1-2 PUFFS EVERY 6 HRS AS NEEDED.
     Dates: start: 20161109
  4. BIO-GLYCOZYME FORTE [Concomitant]
  5. MELATONIN [Concomitant]
     Active Substance: MELATONIN
     Dosage: 300.0UG AS REQUIRED
     Dates: start: 20151221
  6. VITAMIN B12 [Concomitant]
     Active Substance: CYANOCOBALAMIN
     Dates: start: 20151111
  7. CALCIUM MAGNESIUM [Concomitant]
     Active Substance: CALCIUM\MAGNESIUM
     Route: 048
     Dates: start: 20161111
  8. PROBIOTIC [Concomitant]
     Active Substance: PROBIOTICS NOS
     Route: 048
     Dates: start: 20151111
  9. BIOTIN [Concomitant]
     Active Substance: BIOTIN
     Dates: start: 20160713
  10. SELENIUM [Concomitant]
     Active Substance: SELENIUM
     Route: 048
     Dates: start: 20160815
  11. ULTRA VIREX [Concomitant]
     Route: 048
     Dates: start: 20160518

REACTIONS (1)
  - Rash [Recovering/Resolving]

NARRATIVE: CASE EVENT DATE: 20160927
